FAERS Safety Report 4384935-4 (Version None)
Quarter: 2004Q2

REPORT INFORMATION
  Report Type: 
  Country: None (occurrence: None)
  Receive Date: 20040623
  Receipt Date: 20040609
  Transmission Date: 20050107
  Serious: Yes (Life-Threatening)
  Sender: FDA-Public Use
  Company Number: 2004UW11678

PATIENT
  Age: 69 Year
  Sex: Female

DRUGS (13)
  1. CRESTOR [Suspect]
     Indication: BLOOD CHOLESTEROL INCREASED
     Dosage: 10 MG QD PO
     Route: 048
     Dates: start: 20040416
  2. CARDIZEM CD [Concomitant]
  3. NEXIUM [Concomitant]
  4. AERIUS [Concomitant]
  5. ALTACE [Concomitant]
  6. CALCIUM AND VITAMIN D [Concomitant]
  7. ATIVAN [Concomitant]
  8. PLAVIX [Concomitant]
  9. NITROGLYCERIN [Concomitant]
  10. VENTOLIN  /00139501/ [Concomitant]
  11. FLOVENT [Concomitant]
  12. CORTISONE [Concomitant]
  13. NASONEX [Concomitant]

REACTIONS (5)
  - ASTHMA [None]
  - CONDITION AGGRAVATED [None]
  - DRUG HYPERSENSITIVITY [None]
  - RESPIRATORY ARREST [None]
  - SKIN REACTION [None]
